FAERS Safety Report 7222127-1 (Version None)
Quarter: 2011Q1

REPORT INFORMATION
  Report Type: 
  Country: None (occurrence: None)
  Receive Date: 20110112
  Receipt Date: 20110106
  Transmission Date: 20110831
  Serious: Yes (Hospitalization, Other)
  Sender: FDA-Public Use
  Company Number: NZ-B.I. PHARMACEUTICALS,INC./RIDGEFIELD-2011-BP-00265BP

PATIENT
  Sex: Male
  Weight: 76.2 kg

DRUGS (4)
  1. TIOTROPIUM BROMIDE [Suspect]
     Indication: CHRONIC OBSTRUCTIVE PULMONARY DISEASE
     Dosage: 5 MCG
     Route: 055
     Dates: start: 20101101
  2. ASPIRIN [Concomitant]
     Dosage: 100 MG
     Route: 048
  3. GTN SPRAY [Suspect]
     Indication: DRUG THERAPY
     Route: 060
     Dates: start: 20101101
  4. FLIXOTIDE [Concomitant]
     Dosage: 1000 MCG
     Route: 055

REACTIONS (1)
  - PRINZMETAL ANGINA [None]
